FAERS Safety Report 22726462 (Version 5)
Quarter: 2023Q4

REPORT INFORMATION
  Report Type: Report from Study
  Country: US (occurrence: US)
  Receive Date: 20230720
  Receipt Date: 20231218
  Transmission Date: 20240110
  Serious: No
  Sender: FDA-Public Use
  Company Number: US-002147023-NVSC2023US157937

PATIENT
  Sex: Female

DRUGS (1)
  1. KESIMPTA [Suspect]
     Active Substance: OFATUMUMAB
     Indication: Product used for unknown indication
     Dosage: UNK
     Route: 065

REACTIONS (7)
  - Decreased appetite [Unknown]
  - Pain in extremity [Unknown]
  - Weight decreased [Unknown]
  - Urinary tract infection [Unknown]
  - Injection site pain [Unknown]
  - Injection site haemorrhage [Unknown]
  - Fear of injection [Unknown]
